FAERS Safety Report 24050444 (Version 8)
Quarter: 2025Q2

REPORT INFORMATION
  Report Type: Spontaneous
  Country: US (occurrence: US)
  Receive Date: 20240704
  Receipt Date: 20250612
  Transmission Date: 20250716
  Serious: Yes (Death, Hospitalization, Other)
  Sender: CSL BEHRING
  Company Number: US-BEH-2024174876

PATIENT
  Age: 3 Year
  Sex: Female

DRUGS (10)
  1. HIZENTRA [Suspect]
     Active Substance: HUMAN IMMUNOGLOBULIN G
     Indication: Hypogammaglobulinaemia
     Dosage: 6 G, QOW(EVERY 2 WEEKS)
     Route: 058
     Dates: start: 202405
  2. HIZENTRA [Suspect]
     Active Substance: HUMAN IMMUNOGLOBULIN G
     Dosage: 2 G, BIW (30 ML) - STRENGTH 0.2GM/ML
     Route: 058
     Dates: start: 202405
  3. HIZENTRA [Suspect]
     Active Substance: HUMAN IMMUNOGLOBULIN G
     Dosage: 4 G, BIW (30 ML) - 0.2GM/ML
     Route: 058
     Dates: start: 202405
  4. HIZENTRA [Suspect]
     Active Substance: HUMAN IMMUNOGLOBULIN G
     Dosage: 2 G, QOW (STRENGTH: 0.2GM/ML)
     Route: 058
     Dates: start: 202405
  5. HIZENTRA [Suspect]
     Active Substance: HUMAN IMMUNOGLOBULIN G
     Dosage: 4 G, QOW(STRENGTH: 0.2GM/ML)
     Route: 058
     Dates: start: 202405
  6. TADLIQ [Concomitant]
     Active Substance: TADALAFIL
  7. REMODULIN [Concomitant]
     Active Substance: TREPROSTINIL
     Route: 042
  8. TETRABENAZINE [Concomitant]
     Active Substance: TETRABENAZINE
  9. Lmx 4 plus [Concomitant]
  10. ARANESP [Concomitant]
     Active Substance: DARBEPOETIN ALFA

REACTIONS (8)
  - Death [Fatal]
  - Shunt malfunction [Unknown]
  - Haematological infection [Unknown]
  - Illness [Unknown]
  - Pyrexia [Unknown]
  - Urinary tract infection [Unknown]
  - Therapy change [Unknown]
  - Hospitalisation [Unknown]

NARRATIVE: CASE EVENT DATE: 20250607
